FAERS Safety Report 6464219-0 (Version None)
Quarter: 2009Q4

REPORT INFORMATION
  Report Type: 
  Country: None (occurrence: None)
  Receive Date: 20091201
  Receipt Date: 20091124
  Transmission Date: 20100525
  Serious: Yes (Life-Threatening, Other)
  Sender: FDA-Public Use
  Company Number: GB-ELI_LILLY_AND_COMPANY-GB200910003515

PATIENT
  Sex: Male
  Weight: 89 kg

DRUGS (4)
  1. BYETTA [Suspect]
     Dosage: 10 UG, 2/D
     Route: 058
     Dates: start: 20071129, end: 20081201
  2. OMEPRAZOLE [Concomitant]
     Dosage: 10 G, DAILY (1/D)
     Route: 048
     Dates: start: 20020101
  3. GLICLAZIDE [Concomitant]
     Dosage: 80 MG, DAILY (1/D)
     Route: 048
     Dates: start: 20080801
  4. ROSUVASTATIN [Concomitant]
     Dosage: 10 MG, DAILY (1/D)
     Route: 048
     Dates: start: 20070101

REACTIONS (1)
  - COLON CANCER METASTATIC [None]
